FAERS Safety Report 23076368 (Version 3)
Quarter: 2023Q4

REPORT INFORMATION
  Report Type: Spontaneous
  Country: US (occurrence: US)
  Receive Date: 20231017
  Receipt Date: 20231127
  Transmission Date: 20240110
  Serious: No
  Sender: FDA-Public Use
  Company Number: US-BAYER-2023A140790

PATIENT
  Age: 30 Year
  Sex: Female

DRUGS (1)
  1. MIRENA [Suspect]
     Active Substance: LEVONORGESTREL
     Indication: Contraception
     Dosage: 20?G/DAY
     Route: 015
     Dates: start: 20230706, end: 20230918

REACTIONS (4)
  - Abnormal uterine bleeding [Recovered/Resolved]
  - Abdominal pain [Recovered/Resolved]
  - Device physical property issue [None]
  - Device deployment issue [None]

NARRATIVE: CASE EVENT DATE: 20230706
